FAERS Safety Report 19916421 (Version 1)
Quarter: 2021Q4

REPORT INFORMATION
  Report Type: Spontaneous
  Country: US (occurrence: US)
  Receive Date: 20211005
  Receipt Date: 20211005
  Transmission Date: 20220303
  Serious: Yes (Other)
  Sender: FDA-Public Use
  Company Number: US-SUN PHARMACEUTICAL INDUSTRIES LTD-2021R1-313037

PATIENT
  Age: 38 Year
  Sex: Female

DRUGS (6)
  1. CARBIDOPA AND LEVODOPA [Suspect]
     Active Substance: CARBIDOPA\LEVODOPA
     Indication: Chorea
     Dosage: UNK
     Route: 065
  2. CLONAZEPAM [Suspect]
     Active Substance: CLONAZEPAM
     Indication: Chorea
     Dosage: UNK
     Route: 065
  3. LEVETIRACETAM [Suspect]
     Active Substance: LEVETIRACETAM
     Indication: Chorea
     Dosage: UNK
     Route: 065
  4. RISPERIDONE [Suspect]
     Active Substance: RISPERIDONE
     Indication: Chorea
     Dosage: UNK
     Route: 065
  5. CLOBAZAM [Suspect]
     Active Substance: CLOBAZAM
     Indication: Chorea
     Dosage: UNK
     Route: 065
  6. VALPROIC ACID [Suspect]
     Active Substance: VALPROIC ACID
     Indication: Chorea
     Dosage: UNK
     Route: 065

REACTIONS (1)
  - Therapy non-responder [Unknown]
